FAERS Safety Report 20616837 (Version 1)
Quarter: 2022Q1

REPORT INFORMATION
  Report Type: Spontaneous
  Country: US (occurrence: None)
  Receive Date: 20220318
  Receipt Date: 20220318
  Transmission Date: 20220423
  Serious: Yes (Hospitalization)
  Sender: FDA-Public Use
  Company Number: None

PATIENT
  Age: 43 Year
  Sex: Female
  Weight: 87 kg

DRUGS (2)
  1. ZOSYN [Suspect]
     Active Substance: PIPERACILLIN SODIUM\TAZOBACTAM SODIUM
     Indication: Colitis
     Dosage: FREQUENCY : DAILY;?
     Route: 042
     Dates: start: 20220214, end: 20220219
  2. VANCOMYCIN [Concomitant]
     Active Substance: VANCOMYCIN
     Dates: start: 20220219, end: 20220219

REACTIONS (9)
  - Pyrexia [None]
  - Chills [None]
  - Nausea [None]
  - Malaise [None]
  - Vomiting [None]
  - Diarrhoea [None]
  - Flank pain [None]
  - Chills [None]
  - Urine output decreased [None]

NARRATIVE: CASE EVENT DATE: 20220222
